FAERS Safety Report 19902910 (Version 4)
Quarter: 2021Q4

REPORT INFORMATION
  Report Type: Spontaneous
  Country: US (occurrence: US)
  Receive Date: 20211001
  Receipt Date: 20211202
  Transmission Date: 20220303
  Serious: Yes (Life-Threatening, Hospitalization, Other)
  Sender: FDA-Public Use
  Company Number: US-MACLEODS PHARMACEUTICALS US LTD-MAC2021032828

PATIENT

DRUGS (7)
  1. LIDOCAINE [Suspect]
     Active Substance: LIDOCAINE
     Indication: Product used for unknown indication
     Dosage: 3 MILLILITER, 1 %, INJECTION, SUBMAXIMALLY DOSED LIDOCAINE INFILTRATION
     Route: 008
  2. LIDOCAINE [Suspect]
     Active Substance: LIDOCAINE
     Dosage: 20 MILLILITER, LOCAL INFILTRATION
     Route: 065
  3. LIDOCAINE [Suspect]
     Active Substance: LIDOCAINE
     Dosage: UNK, INCREMENTAL, INJECTION
     Route: 008
  4. LIDOCAINE [Suspect]
     Active Substance: LIDOCAINE
     Dosage: 2 MILLILITER
     Route: 061
  5. BUPIVACAINE [Suspect]
     Active Substance: BUPIVACAINE
     Indication: Product used for unknown indication
     Dosage: 8 MILLILITER
     Route: 008
  6. EPINEPHRINE [Concomitant]
     Active Substance: EPINEPHRINE
     Indication: Product used for unknown indication
     Dosage: UNK, 0.2 UG/KG/MIN
     Route: 065
  7. IOHEXOL [Concomitant]
     Active Substance: IOHEXOL
     Indication: Product used for unknown indication
     Dosage: 1 MILLILITER (180 MG IODINE/ ML)
     Route: 065

REACTIONS (13)
  - Bundle branch block left [Recovered/Resolved]
  - Local anaesthetic systemic toxicity [Recovered/Resolved]
  - Tachypnoea [Recovered/Resolved]
  - Tachycardia [Recovered/Resolved]
  - Hypoxia [Recovered/Resolved]
  - Respiratory distress [Recovered/Resolved]
  - Hypertension [Recovered/Resolved]
  - Atrial fibrillation [Recovered/Resolved]
  - Ventricular hypokinesia [Recovered/Resolved]
  - Ejection fraction decreased [Recovered/Resolved]
  - Electrocardiogram QT prolonged [Recovered/Resolved]
  - Circulatory collapse [Recovered/Resolved]
  - Depression [Recovered/Resolved]
